FAERS Safety Report 16154187 (Version 1)
Quarter: 2019Q2

REPORT INFORMATION
  Report Type: Report from Study
  Country: DE (occurrence: DE)
  Receive Date: 20190403
  Receipt Date: 20190403
  Transmission Date: 20190711
  Serious: Yes (Death)
  Sender: FDA-Public Use
  Company Number: DE-TEVA-2019-DE-1032646

PATIENT
  Age: 36 Year
  Sex: Male

DRUGS (2)
  1. BUPRENORPHINE. [Suspect]
     Active Substance: BUPRENORPHINE
     Route: 065
  2. MORPHINE [Suspect]
     Active Substance: MORPHINE
     Route: 065

REACTIONS (1)
  - Toxicity to various agents [Fatal]
